FAERS Safety Report 23951277 (Version 4)
Quarter: 2025Q4

REPORT INFORMATION
  Report Type: Spontaneous
  Country: US (occurrence: US)
  Receive Date: 20240607
  Receipt Date: 20251019
  Transmission Date: 20260117
  Serious: Yes (Hospitalization)
  Sender: CSL BEHRING
  Company Number: US-BEH-2024173502

PATIENT
  Age: 67 Year
  Sex: Female

DRUGS (4)
  1. PRIVIGEN [Suspect]
     Active Substance: HUMAN IMMUNOGLOBULIN G
     Indication: Immunodeficiency common variable
     Dosage: 20 G, QOW
     Route: 042
     Dates: start: 201910
  2. PRIVIGEN [Suspect]
     Active Substance: HUMAN IMMUNOGLOBULIN G
     Dosage: 20 G, QOW
     Route: 042
     Dates: start: 201910
  3. RUCONEST [Concomitant]
     Active Substance: CONESTAT ALFA
  4. EUFLEXXA [Concomitant]
     Active Substance: HYALURONATE SODIUM
     Dosage: (3X2ML)

REACTIONS (8)
  - Spinal disorder [Unknown]
  - Cough [Unknown]
  - Chest discomfort [Unknown]
  - Weight decreased [Unknown]
  - Road traffic accident [Unknown]
  - Weight decreased [Unknown]
  - Nerve compression [Unknown]
  - Temporomandibular pain and dysfunction syndrome [Unknown]

NARRATIVE: CASE EVENT DATE: 20241201
